FAERS Safety Report 5843504-7 (Version None)
Quarter: 2008Q3

REPORT INFORMATION
  Report Type: 
  Country: None (occurrence: None)
  Receive Date: 20080808
  Receipt Date: 20080725
  Transmission Date: 20090109
  Serious: Yes (Other)
  Sender: FDA-Public Use
  Company Number: 2008SP013529

PATIENT
  Age: 59 Year
  Sex: Female

DRUGS (2)
  1. PEG-INTRON [Suspect]
     Indication: HEPATITIS C
     Dates: start: 20040918, end: 20050305
  2. COPEGUS [Suspect]
     Indication: HEPATITIS C
     Dates: start: 20040918, end: 20050305

REACTIONS (2)
  - ARTHRITIS [None]
  - FIBROMYALGIA [None]
